FAERS Safety Report 6690587-0 (Version None)
Quarter: 2010Q2

REPORT INFORMATION
  Report Type: 
  Country: None (occurrence: None)
  Receive Date: 20100421
  Receipt Date: 20100414
  Transmission Date: 20101027
  Serious: Yes (Hospitalization)
  Sender: FDA-Public Use
  Company Number: B0621416A

PATIENT
  Sex: Female

DRUGS (5)
  1. PAXIL [Suspect]
     Indication: DEPRESSION
     Dosage: 20MG PER DAY
     Route: 048
     Dates: end: 20070706
  2. FAMOTIDINE [Concomitant]
     Indication: GASTRITIS PROPHYLAXIS
     Dosage: 40MG PER DAY
     Route: 048
  3. DEZOLAM [Concomitant]
     Indication: INSOMNIA
     Dosage: .5MG PER DAY
     Route: 048
  4. CARBIDOPA-LEVODOPA [Concomitant]
     Indication: PARKINSON'S DISEASE
     Dosage: 400MG PER DAY
     Route: 048
     Dates: end: 20071129
  5. CARBIDOPA-LEVODOPA [Concomitant]
     Route: 048
     Dates: start: 20071130, end: 20080926

REACTIONS (2)
  - PARKINSONISM [None]
  - TREMOR [None]
